FAERS Safety Report 18022586 (Version 1)
Quarter: 2020Q3

REPORT INFORMATION
  Report Type: Report from Study
  Country: FR (occurrence: FR)
  Receive Date: 20200714
  Receipt Date: 20200714
  Transmission Date: 20201103
  Serious: Yes (Hospitalization)
  Sender: FDA-Public Use
  Company Number: FR-JNJFOC-20200704851

PATIENT
  Age: 63 Year
  Sex: Female

DRUGS (29)
  1. STELARA [Suspect]
     Active Substance: USTEKINUMAB
     Route: 058
     Dates: start: 20181206
  2. FORADIL [Concomitant]
     Active Substance: FORMOTEROL FUMARATE
  3. ENALAPRIL [Concomitant]
     Active Substance: ENALAPRIL
  4. NASONEX [Concomitant]
     Active Substance: MOMETASONE FUROATE
  5. ZANEXTRA [Concomitant]
     Active Substance: ENALAPRIL MALEATE\LERCANIDIPINE HYDROCHLORIDE
  6. STELARA [Suspect]
     Active Substance: USTEKINUMAB
     Route: 058
     Dates: start: 20190123
  7. PANADEINE CO [Concomitant]
     Active Substance: ACETAMINOPHEN\CODEINE PHOSPHATE
  8. INIPOMP [Concomitant]
     Active Substance: PANTOPRAZOLE SODIUM
  9. STELARA [Suspect]
     Active Substance: USTEKINUMAB
     Route: 058
     Dates: start: 20140116
  10. HYZAAR [Concomitant]
     Active Substance: HYDROCHLOROTHIAZIDE\LOSARTAN POTASSIUM
  11. FORTZAAR [Concomitant]
     Active Substance: HYDROCHLOROTHIAZIDE\LOSARTAN POTASSIUM
  12. NEBIVOLOL. [Concomitant]
     Active Substance: NEBIVOLOL
  13. BILASTINE [Concomitant]
     Active Substance: BILASTINE
  14. TEMERIT [Concomitant]
     Active Substance: NEBIVOLOL
  15. AERIUS (DESLORATADINE) [Concomitant]
     Active Substance: DESLORATADINE
  16. DAIVOBET [Concomitant]
     Active Substance: BETAMETHASONE DIPROPIONATE\CALCIPOTRIENE
     Route: 065
     Dates: start: 20160517
  17. VENTOLINE                          /00139501/ [Concomitant]
     Active Substance: ALBUTEROL
     Dates: start: 20181127
  18. STELARA [Suspect]
     Active Substance: USTEKINUMAB
     Indication: PSORIASIS
     Route: 058
     Dates: start: 20131018
  19. PANTOPRAZOLE [Concomitant]
     Active Substance: PANTOPRAZOLE
  20. SPIRONOLACTONE. [Concomitant]
     Active Substance: SPIRONOLACTONE
  21. ATARAX [Concomitant]
     Active Substance: HYDROXYZINE HYDROCHLORIDE
  22. DERMOVAL                           /00008501/ [Concomitant]
     Active Substance: CLOBETASOL PROPIONATE
  23. STELARA [Suspect]
     Active Substance: USTEKINUMAB
     Route: 058
     Dates: start: 20131115
  24. SPIRIVA [Concomitant]
     Active Substance: TIOTROPIUM BROMIDE MONOHYDRATE
  25. RILMENIDINE [Concomitant]
     Active Substance: RILMENIDINE
  26. ULTIBRO BREEZHALER [Concomitant]
     Active Substance: GLYCOPYRRONIUM\INDACATEROL
  27. VOLTAREN [Concomitant]
     Active Substance: DICLOFENAC SODIUM
  28. TOPIQUE JAUNE [Concomitant]
  29. XAMIOL                             /06356901/ [Concomitant]
     Active Substance: BETAMETHASONE DIPROPIONATE\CALCIPOTRIENE

REACTIONS (3)
  - Off label use [Unknown]
  - Erysipelas [Recovered/Resolved]
  - Product use issue [Unknown]

NARRATIVE: CASE EVENT DATE: 20181206
